FAERS Safety Report 6028131-3 (Version None)
Quarter: 2009Q1

REPORT INFORMATION
  Report Type: 
  Country: None (occurrence: None)
  Receive Date: 20090105
  Receipt Date: 20090105
  Transmission Date: 20090719
  Serious: Yes (Other)
  Sender: FDA-Public Use
  Company Number: None

PATIENT
  Age: 75 Year
  Sex: Female
  Weight: 63.5036 kg

DRUGS (2)
  1. ALTABAX [Suspect]
     Indication: WOUND INFECTION
     Dosage: LIGHT COVER TWICE A DAY
     Dates: start: 20081210
  2. ALTABAX [Suspect]
     Indication: WOUND INFECTION
     Dosage: LIGHT COVER TWICE A DAY
     Dates: start: 20081211

REACTIONS (2)
  - PRURITUS [None]
  - SKIN BURNING SENSATION [None]
